FAERS Safety Report 5493456-7 (Version None)
Quarter: 2007Q4

REPORT INFORMATION
  Report Type: 
  Country: None (occurrence: None)
  Receive Date: 20071019
  Receipt Date: 20071012
  Transmission Date: 20080405
  Serious: Yes (Hospitalization)
  Sender: FDA-Public Use
  Company Number: TPG2007A00615

PATIENT
  Age: 69 Year
  Sex: Male

DRUGS (7)
  1. LANSOPRAZOLE [Suspect]
     Indication: REFLUX OESOPHAGITIS
     Dosage: 30 MG, PER ORAL
     Route: 048
     Dates: start: 20021031, end: 20070726
  2. HAWTHORN (CRATAEGUS LAEVIGATA) (CAPSULES) [Concomitant]
  3. ALLOPURINOL (ALLOPURINOL) (TABLETS) [Concomitant]
  4. GODAMED (PAYNOCIL) (TABLETS) [Concomitant]
  5. TALCID (HYDROTALCITE) [Concomitant]
  6. PASPERTIN (METOCLOPRAMIDE HYDROCHLORIDE) [Concomitant]
  7. TAMSULOSIN HCL [Concomitant]

REACTIONS (17)
  - ATRIAL FIBRILLATION [None]
  - BENIGN PROSTATIC HYPERPLASIA [None]
  - BLOOD PRESSURE DECREASED [None]
  - CHOLELITHIASIS [None]
  - DILATATION ATRIAL [None]
  - DIVERTICULUM [None]
  - EJECTION FRACTION DECREASED [None]
  - GENERAL PHYSICAL HEALTH DETERIORATION [None]
  - HEPATIC STEATOSIS [None]
  - HYDROCHOLECYSTIS [None]
  - PANCREATIC CARCINOMA [None]
  - RENAL CYST [None]
  - TACHYCARDIA [None]
  - VENTRICULAR ARRHYTHMIA [None]
  - VENTRICULAR EXTRASYSTOLES [None]
  - VENTRICULAR TACHYCARDIA [None]
  - WEIGHT DECREASED [None]
